FAERS Safety Report 26213390 (Version 1)
Quarter: 2025Q4

REPORT INFORMATION
  Report Type: Spontaneous
  Country: GB (occurrence: GB)
  Receive Date: 20251230
  Receipt Date: 20251230
  Transmission Date: 20260118
  Serious: Yes (Death)
  Sender: MYLAN
  Company Number: GB-MYLANLABS-2025M1110103

PATIENT
  Age: 56 Year
  Sex: Male

DRUGS (8)
  1. CYCLOSPORINE [Suspect]
     Active Substance: CYCLOSPORINE
     Indication: Chronic graft versus host disease
     Dosage: UNK
  2. FLUTICASONE [Suspect]
     Active Substance: FLUTICASONE
     Indication: Chronic graft versus host disease
     Dosage: UNK, INHALER
  3. TIOTROPIUM [Suspect]
     Active Substance: TIOTROPIUM
     Indication: Chronic graft versus host disease
     Dosage: UNK, INHALER
  4. ALBUTEROL [Suspect]
     Active Substance: ALBUTEROL
     Indication: Chronic graft versus host disease
     Dosage: UNK, INHALER
  5. AZITHROMYCIN [Suspect]
     Active Substance: AZITHROMYCIN
     Indication: Chronic graft versus host disease
     Dosage: UNK
  6. MONTELUKAST [Suspect]
     Active Substance: MONTELUKAST
     Indication: Chronic graft versus host disease
     Dosage: UNK
  7. RUXOLITINIB [Suspect]
     Active Substance: RUXOLITINIB
     Indication: Chronic graft versus host disease
     Dosage: UNK
  8. BELUMOSUDIL [Suspect]
     Active Substance: BELUMOSUDIL
     Indication: Chronic graft versus host disease
     Dosage: UNK

REACTIONS (2)
  - Drug ineffective [Fatal]
  - Product prescribing issue [Unknown]
